FAERS Safety Report 5202451-4 (Version None)
Quarter: 2006Q4

REPORT INFORMATION
  Report Type: 
  Country: None (occurrence: None)
  Receive Date: 20061010
  Receipt Date: 20050819
  Transmission Date: 20070319
  Serious: Yes (Hospitalization)
  Sender: FDA-Public Use
  Company Number: 2005P1000585

PATIENT
  Age: 45 Year
  Sex: Male

DRUGS (4)
  1. RETEPLASE (RETEPLASE) [Suspect]
     Indication: ACUTE MYOCARDIAL INFARCTION
     Dosage: 2 IU; 1X; IV
     Route: 042
     Dates: start: 20050625, end: 20050625
  2. ABCIXIMAB (ABCIXIMAB) [Suspect]
     Indication: ACUTE MYOCARDIAL INFARCTION
     Dosage: 10.6 ML; IV
     Route: 042
     Dates: start: 20050625, end: 20050625
  3. HEPARIN [Concomitant]
  4. ACE INHIBITOR NOS [Concomitant]

REACTIONS (1)
  - ISCHAEMIA [None]
